FAERS Safety Report 9509488 (Version 1)
Quarter: 2013Q3

REPORT INFORMATION
  Report Type: Spontaneous
  Country: US (occurrence: US)
  Receive Date: 20130909
  Receipt Date: 20130909
  Transmission Date: 20140515
  Serious: No
  Sender: FDA-Public Use
  Company Number: US-BRISTOL-MYERS SQUIBB COMPANY-18952671

PATIENT
  Age: 19 Year
  Sex: Male
  Weight: 56.69 kg

DRUGS (4)
  1. ABILIFY [Suspect]
     Indication: BIPOLAR II DISORDER
     Dosage: LAST DOSE WAS IN FEBRUARY 2013.
     Dates: start: 201301
  2. ABILIFY [Suspect]
     Indication: DEPRESSION
     Dosage: LAST DOSE WAS IN FEBRUARY 2013.
     Dates: start: 201301
  3. SERTRALINE [Concomitant]
  4. RISPERDAL [Concomitant]

REACTIONS (3)
  - Tongue disorder [Unknown]
  - Muscle tightness [Unknown]
  - Dysphagia [Unknown]
